FAERS Safety Report 8171501-8 (Version None)
Quarter: 2012Q1

REPORT INFORMATION
  Report Type: 
  Country: None (occurrence: None)
  Receive Date: 20120228
  Receipt Date: 20120216
  Transmission Date: 20120608
  Serious: Yes (Other)
  Sender: FDA-Public Use
  Company Number: CA-ELI_LILLY_AND_COMPANY-CA201202005950

PATIENT
  Age: 93 Year
  Sex: Female

DRUGS (7)
  1. MULTI-VITAMIN [Concomitant]
  2. PROBIOTICS [Concomitant]
  3. DILAUDID [Concomitant]
  4. VITAMIN E [Concomitant]
  5. FORTEO [Suspect]
     Indication: OSTEOPOROSIS
     Dosage: 20 UG, QD
     Route: 058
     Dates: start: 20111001
  6. DILANTIN [Concomitant]
  7. VITAMIN D [Concomitant]

REACTIONS (3)
  - FALL [None]
  - CONVULSION [None]
  - CONTUSION [None]
